FAERS Safety Report 7669714-4 (Version None)
Quarter: 2011Q3

REPORT INFORMATION
  Report Type: 
  Country: None (occurrence: None)
  Receive Date: 20110808
  Receipt Date: 20110801
  Transmission Date: 20111222
  Serious: Yes (Hospitalization)
  Sender: FDA-Public Use
  Company Number: AU-CEPHALON-2011004029

PATIENT
  Sex: Male
  Weight: 15 kg

DRUGS (1)
  1. BENDAMUSTINE HCL [Suspect]
     Indication: ACUTE LEUKAEMIA
     Route: 041
     Dates: start: 20110525

REACTIONS (2)
  - PYREXIA [None]
  - PANCYTOPENIA [None]
